FAERS Safety Report 20104174 (Version 1)
Quarter: 2021Q4

REPORT INFORMATION
  Report Type: Spontaneous
  Country: US (occurrence: US)
  Receive Date: 20211123
  Receipt Date: 20211123
  Transmission Date: 20220303
  Serious: No
  Sender: FDA-Public Use
  Company Number: US-AMNEAL PHARMACEUTICALS-2021-AMRX-01728

PATIENT
  Sex: Female

DRUGS (2)
  1. ISOTRETINOIN [Suspect]
     Active Substance: ISOTRETINOIN
     Indication: Product used for unknown indication
     Dosage: 30 MILLIGRAM
     Route: 065
     Dates: start: 20201119, end: 20210409
  2. ISOTRETINOIN [Suspect]
     Active Substance: ISOTRETINOIN
     Dosage: 40 MILLIGRAM
     Route: 065
     Dates: start: 20201119, end: 20210409

REACTIONS (1)
  - Acne [Unknown]
